FAERS Safety Report 6516339 (Version 2)
Quarter: 2014Q3

REPORT INFORMATION
  Report Type: Spontaneous
  Country: US (occurrence: FR)
  Receive Date: 20071228
  Receipt Date: 20140728
  Transmission Date: 20150326
  Serious: Yes (Hospitalization, Other)
  Sender: FDA-Public Use
  Company Number: US-RANBAXY-2007US-12292

PATIENT

DRUGS (4)
  1. STRONTIUM RANELATE [Suspect]
     Active Substance: STRONTIUM RANELATE
     Indication: OSTEOPOROSIS
     Dosage: 2 G, UNK
     Route: 065
     Dates: start: 200602, end: 20060302
  2. TERIPARATIDE [Concomitant]
     Active Substance: TERIPARATIDE
     Indication: OSTEOPOROSIS
     Dosage: UNK
     Route: 065
  3. BECLOMETASONE DIPROPIONATE [Suspect]
     Active Substance: BECLOMETHASONE DIPROPIONATE
     Indication: PRODUCT USED FOR UNKNOWN INDICATION
     Dosage: 250 UNK, UNK
     Route: 050
     Dates: end: 20060302
  4. ISOPTIN SR [Suspect]
     Active Substance: VERAPAMIL HYDROCHLORIDE
     Indication: HYPERTENSION
     Route: 048
     Dates: end: 20060302

REACTIONS (14)
  - Gamma-glutamyltransferase increased [Unknown]
  - Phlebitis [Unknown]
  - Blood creatinine increased [Recovered/Resolved]
  - Fracture [Unknown]
  - Hepatic enzyme increased [Unknown]
  - Rash maculo-papular [Unknown]
  - Rash erythematous [Unknown]
  - Transaminases increased [Unknown]
  - Toxic skin eruption [Recovered/Resolved]
  - Pulmonary embolism [Unknown]
  - Hepatitis [Unknown]
  - Febrile infection [Unknown]
  - Cardiac disorder [None]
  - Lung infection [Unknown]

NARRATIVE: CASE EVENT DATE: 200603
